FAERS Safety Report 8048247-X (Version None)
Quarter: 2011Q4

REPORT INFORMATION
  Report Type: 
  Country: None (occurrence: None)
  Receive Date: 20111209
  Receipt Date: 20111031
  Transmission Date: 20120403
  Serious: No
  Sender: FDA-Public Use
  Company Number: 2011SP051263

PATIENT
  Age: 50 Year
  Sex: Female

DRUGS (5)
  1. IMITREX [Concomitant]
  2. VICTRELIS [Suspect]
     Indication: HEPATITIS C
     Dosage: PO
     Route: 048
     Dates: start: 20110925
  3. XANAX [Concomitant]
  4. ONDANSETRON HCL [Concomitant]
  5. FLUOXETINE [Concomitant]

REACTIONS (2)
  - ABDOMINAL DISCOMFORT [None]
  - NAUSEA [None]
